FAERS Safety Report 5530865-1 (Version None)
Quarter: 2007Q4

REPORT INFORMATION
  Report Type: 
  Country: None (occurrence: None)
  Receive Date: 20071130
  Receipt Date: 20071120
  Transmission Date: 20080405
  Serious: Yes (Other)
  Sender: FDA-Public Use
  Company Number: IT-SANOFI-SYNTHELABO-A01200712980

PATIENT
  Age: 41 Year
  Sex: Female
  Weight: 61 kg

DRUGS (1)
  1. LEUPROLIDE ACETATE [Suspect]
     Indication: INFERTILITY
     Route: 058
     Dates: start: 20060401

REACTIONS (2)
  - ASCITES [None]
  - HYDROTHORAX [None]
